FAERS Safety Report 7021248-6 (Version None)
Quarter: 2010Q3

REPORT INFORMATION
  Report Type: 
  Country: None (occurrence: None)
  Receive Date: 20100929
  Receipt Date: 20100918
  Transmission Date: 20110219
  Serious: Yes (Hospitalization, Other)
  Sender: FDA-Public Use
  Company Number: US-PFIZER INC-2010118879

PATIENT
  Age: 52 Year
  Sex: Male

DRUGS (2)
  1. SERTRALINE HYDROCHLORIDE [Suspect]
     Indication: DEPRESSION
     Dosage: 200 MG, UNK
  2. SERTRALINE HYDROCHLORIDE [Suspect]
     Dosage: 400 MG, UNK

REACTIONS (1)
  - DIFFUSE ALVEOLAR DAMAGE [None]
